FAERS Safety Report 17981151 (Version 1)
Quarter: 2020Q3

REPORT INFORMATION
  Report Type: Spontaneous
  Country: MY (occurrence: MY)
  Receive Date: 20200705
  Receipt Date: 20200705
  Transmission Date: 20201103
  Serious: Yes (Hospitalization, Other)
  Sender: FDA-Public Use
  Company Number: MY-INGENUS PHARMACEUTICALS, LLC-2020INF000109

PATIENT
  Age: 22 Year
  Sex: Female

DRUGS (7)
  1. ARSENIC TRIOXIDE. [Suspect]
     Active Substance: ARSENIC TRIOXIDE
     Indication: CHLOROMA
  2. IDARUBICIN [Suspect]
     Active Substance: IDARUBICIN
     Indication: CHLOROMA
  3. ALL?TRANS?RETINOIC?ACID (ATRA) [Suspect]
     Active Substance: TRETINOIN
     Indication: ACUTE PROMYELOCYTIC LEUKAEMIA
     Dosage: 45 MILLIGRAM/SQ. METER, QD
     Route: 048
  4. IDARUBICIN [Suspect]
     Active Substance: IDARUBICIN
     Indication: ACUTE PROMYELOCYTIC LEUKAEMIA
     Dosage: UNK, 3 DOSES
     Route: 042
  5. DEXAMETHASONE. [Concomitant]
     Active Substance: DEXAMETHASONE
     Indication: PROPHYLAXIS
     Dosage: 10 MILLIGRAM, BID
     Route: 065
  6. ARSENIC TRIOXIDE. [Suspect]
     Active Substance: ARSENIC TRIOXIDE
     Indication: ACUTE PROMYELOCYTIC LEUKAEMIA
     Dosage: 0.15 MILLIGRAM/KILOGRAM, FOR A TOTAL OF 25 DOSES
     Route: 042
  7. ALL?TRANS?RETINOIC?ACID (ATRA) [Suspect]
     Active Substance: TRETINOIN
     Indication: CHLOROMA

REACTIONS (2)
  - Neutropenic sepsis [Recovered/Resolved]
  - Respiratory failure [Recovered/Resolved]
